FAERS Safety Report 13073766 (Version 2)
Quarter: 2017Q3

REPORT INFORMATION
  Report Type: Spontaneous
  Country: US (occurrence: US)
  Receive Date: 20161229
  Receipt Date: 20170731
  Transmission Date: 20171127
  Serious: Yes (Other)
  Sender: FDA-Public Use
  Company Number: US-TEVA-723502USA

PATIENT
  Age: 56 Year
  Sex: Male
  Weight: 133.4 kg

DRUGS (7)
  1. WARFARIN [Suspect]
     Active Substance: WARFARIN
     Dosage: ON TUESDAY, WEDNESDAY, THURSDAY, SATURDAY, SUNDAY
     Route: 048
  2. TIKOSYN [Suspect]
     Active Substance: DOFETILIDE
     Route: 048
  3. LISINOPRIL. [Concomitant]
     Active Substance: LISINOPRIL
     Route: 048
  4. POTASSIUM CHLORIDE. [Concomitant]
     Active Substance: POTASSIUM CHLORIDE
     Route: 048
  5. DILTIAZEM. [Concomitant]
     Active Substance: DILTIAZEM
     Route: 048
  6. WARFARIN [Suspect]
     Active Substance: WARFARIN
     Dosage: ON MONDAY AND FRIDAY
     Route: 048
     Dates: end: 20160912
  7. FUROSEMIDE. [Concomitant]
     Active Substance: FUROSEMIDE
     Route: 048

REACTIONS (9)
  - Dizziness [Recovering/Resolving]
  - Arrhythmia supraventricular [Recovering/Resolving]
  - Atrial flutter [Recovering/Resolving]
  - Swelling [Recovering/Resolving]
  - Palpitations [Recovering/Resolving]
  - Dyspnoea exertional [Recovering/Resolving]
  - Electrocardiogram QT prolonged [Recovering/Resolving]
  - Tachycardia [Recovering/Resolving]
  - Fatigue [Recovering/Resolving]

NARRATIVE: CASE EVENT DATE: 2016
